FAERS Safety Report 16997494 (Version 2)
Quarter: 2019Q4

REPORT INFORMATION
  Report Type: Spontaneous
  Country: US (occurrence: US)
  Receive Date: 20191106
  Receipt Date: 20191120
  Transmission Date: 20200122
  Serious: Yes (Other)
  Sender: FDA-Public Use
  Company Number: US-AUROBINDO-AUR-APL-2019-071457

PATIENT
  Age: 31 Year
  Sex: Male

DRUGS (3)
  1. FLUCONAZOLE TABLETS 200 MG [Suspect]
     Active Substance: FLUCONAZOLE
     Indication: CANDIDA INFECTION
     Dosage: 1 DOSAGE FORM, ONCE A DAY, (SUPPOSED TO TAKE IT ONCE DAILY FOR 14 DAYS)
     Route: 048
     Dates: start: 20190104
  2. GABAPENTIN. [Concomitant]
     Active Substance: GABAPENTIN
     Indication: PRODUCT USED FOR UNKNOWN INDICATION
     Dosage: UNK (BEEN ON THIS FOR A VERY LONG TIME)
     Route: 065
  3. CLONIDINE. [Concomitant]
     Active Substance: CLONIDINE
     Indication: PRODUCT USED FOR UNKNOWN INDICATION
     Dosage: UNK, (BEEN ON THAT FOR A VERY LONG TIME)
     Route: 065

REACTIONS (10)
  - Tachycardia [Unknown]
  - Cardiac disorder [Unknown]
  - Heart rate decreased [Unknown]
  - Chest pain [Unknown]
  - Bradycardia [Unknown]
  - Heart rate increased [Unknown]
  - Feeling abnormal [Unknown]
  - Cardiac pacemaker insertion [Unknown]
  - Sinus node dysfunction [Unknown]
  - Heart rate irregular [Unknown]

NARRATIVE: CASE EVENT DATE: 20190104
